FAERS Safety Report 23686729 (Version 1)
Quarter: 2024Q1

REPORT INFORMATION
  Report Type: Spontaneous
  Country: JP (occurrence: JP)
  Receive Date: 20240329
  Receipt Date: 20240329
  Transmission Date: 20240410
  Serious: Yes (Other)
  Sender: FDA-Public Use
  Company Number: JP-OTSUKA-2024_008028

PATIENT
  Age: 5 Decade
  Sex: Male

DRUGS (7)
  1. ABILIFY [Suspect]
     Active Substance: ARIPIPRAZOLE
     Indication: Psychotic disorder
     Dosage: 400MG/28 DAYS
     Route: 030
  2. HALOPERIDOL [Concomitant]
     Active Substance: HALOPERIDOL
     Indication: Product used for unknown indication
     Dosage: 12MG
     Route: 048
  3. RISPERIDONE [Concomitant]
     Active Substance: RISPERIDONE
     Indication: Product used for unknown indication
     Dosage: 9MG
     Route: 048
  4. LEVOMEPROMAZINE MALEATE [Concomitant]
     Active Substance: LEVOMEPROMAZINE MALEATE
     Indication: Product used for unknown indication
     Dosage: 150MG
     Route: 048
  5. OLANZAPINE [Concomitant]
     Active Substance: OLANZAPINE
     Indication: Product used for unknown indication
     Dosage: 20MG
     Route: 048
  6. ASENAPINE MALEATE [Concomitant]
     Active Substance: ASENAPINE MALEATE
     Indication: Product used for unknown indication
     Dosage: 10MG, 1 X VOR DEM SCHLAFEN (VDS)
     Route: 048
  7. LITHIUM CARBONATE [Concomitant]
     Active Substance: LITHIUM CARBONATE
     Indication: Product used for unknown indication
     Dosage: 600MG, 3 X NACH DEM ESSEN (N)
     Route: 048

REACTIONS (5)
  - Autism spectrum disorder [Unknown]
  - Hallucination [Unknown]
  - Abulia [Unknown]
  - Delusion [Unknown]
  - Product use in unapproved indication [Unknown]
